FAERS Safety Report 9069308 (Version 1)
Quarter: 2013Q1

REPORT INFORMATION
  Report Type: Report from Study
  Country: US (occurrence: US)
  Receive Date: 20130131
  Receipt Date: 20130131
  Transmission Date: 20140127
  Serious: No
  Sender: FDA-Public Use
  Company Number: US-ABBOTT-12P-163-1000536-00

PATIENT
  Age: 60 Year
  Sex: Female

DRUGS (17)
  1. HUMIRA [Suspect]
     Indication: RHEUMATOID ARTHRITIS
     Dates: start: 20120901
  2. INFLUENZA VIRUS VACCINE [Suspect]
     Indication: INFLUENZA IMMUNISATION
     Dates: start: 20121023, end: 20121023
  3. GLUCOPHAGE [Concomitant]
     Indication: DIABETES MELLITUS
     Dosage: 500MG 1/2 TAB DAILY
  4. NORVASC [Concomitant]
     Indication: HYPERTENSION
  5. XANAX [Concomitant]
     Indication: ANXIETY
  6. XANAX [Concomitant]
     Indication: PANIC ATTACK
  7. ATENOLOL [Concomitant]
     Indication: HYPERTENSION
  8. SYNTHYROID [Concomitant]
     Indication: THYROIDECTOMY
  9. FOLIC ACID [Concomitant]
     Indication: PRODUCT USED FOR UNKNOWN INDICATION
  10. SPIRIVA [Concomitant]
     Indication: CHRONIC OBSTRUCTIVE PULMONARY DISEASE
     Dosage: 1 INHALATION DAILY
  11. IBUPROFEN [Concomitant]
     Indication: PAIN
     Dosage: 1 TAB AS NEEDED
  12. NEXIUM [Concomitant]
     Indication: DYSPEPSIA
     Dosage: 1 TAB DAILY
  13. NEXIUM [Concomitant]
     Indication: GASTROOESOPHAGEAL REFLUX DISEASE
  14. NEXIUM [Concomitant]
     Indication: HIATUS HERNIA
  15. VITAMIN D [Concomitant]
     Indication: PRODUCT USED FOR UNKNOWN INDICATION
  16. PERCOCET [Concomitant]
     Indication: PAIN
     Dosage: UP TO 3 PILLS DAILY
  17. OXYGEN [Concomitant]
     Indication: SLEEP APNOEA SYNDROME
     Dosage: AT NIGHT

REACTIONS (6)
  - Vaccination site pain [Not Recovered/Not Resolved]
  - Vaccination site erythema [Not Recovered/Not Resolved]
  - Vaccination site reaction [Not Recovered/Not Resolved]
  - Tongue pruritus [Unknown]
  - Eye pruritus [Not Recovered/Not Resolved]
  - Pruritus [Not Recovered/Not Resolved]
